FAERS Safety Report 9614738 (Version 2)
Quarter: 2013Q4

REPORT INFORMATION
  Report Type: Report from Study
  Country: FR (occurrence: FR)
  Receive Date: 20131011
  Receipt Date: 20131127
  Transmission Date: 20140711
  Serious: Yes (Death)
  Sender: FDA-Public Use
  Company Number: FR-ASTELLAS-2013EU008642

PATIENT
  Age: 67 Year
  Sex: Male

DRUGS (2)
  1. ENZALUTAMIDE [Suspect]
     Indication: PROSTATE CANCER
     Dosage: 160 MG, UID/QD
     Route: 048
     Dates: start: 20130712, end: 20130909
  2. SKENAN [Concomitant]
     Indication: PAIN
     Dosage: 120 MG, BID
     Route: 065
     Dates: start: 20130729, end: 20130925

REACTIONS (1)
  - Malignant neoplasm progression [Fatal]
